FAERS Safety Report 5225381-0 (Version None)
Quarter: 2007Q1

REPORT INFORMATION
  Report Type: 
  Country: None (occurrence: None)
  Receive Date: 20070131
  Receipt Date: 20070121
  Transmission Date: 20070707
  Serious: Yes (Hospitalization)
  Sender: FDA-Public Use
  Company Number: JP-ABBOTT-04P-087-0256490-00

PATIENT
  Sex: Male

DRUGS (29)
  1. KALETRA [Suspect]
     Indication: HIV INFECTION
     Route: 048
     Dates: start: 20020513, end: 20020715
  2. KALETRA [Suspect]
     Route: 048
     Dates: start: 20030409, end: 20030409
  3. EFAVIRENZ [Suspect]
     Indication: HIV INFECTION
     Route: 048
     Dates: start: 20010323, end: 20020513
  4. EFAVIRENZ [Suspect]
     Route: 048
     Dates: start: 20030409, end: 20030409
  5. EFAVIRENZ [Suspect]
     Route: 048
     Dates: start: 20030425, end: 20040521
  6. EFAVIRENZ [Suspect]
     Route: 048
     Dates: start: 20041004, end: 20050714
  7. ABACAVIR SULFATE [Suspect]
     Indication: HIV INFECTION
     Route: 048
     Dates: start: 20010406, end: 20030408
  8. NELFINAVIR MESILATE [Suspect]
     Indication: HIV INFECTION
     Route: 048
     Dates: start: 20030425, end: 20040521
  9. NELFINAVIR MESILATE [Suspect]
     Route: 048
     Dates: start: 20041004
  10. BACTRIM [Concomitant]
     Indication: ANTIFUNGAL PROPHYLAXIS
     Dates: start: 20010202, end: 20010406
  11. BACTRIM [Concomitant]
     Dates: start: 20001206, end: 20001211
  12. BACTRIM [Concomitant]
     Dates: start: 20001212, end: 20010125
  13. BACTRIM [Concomitant]
     Dates: start: 20030403, end: 20030708
  14. BACTRIM [Concomitant]
     Route: 048
     Dates: start: 20040708, end: 20041018
  15. LAMIVUDINE [Concomitant]
     Indication: HIV INFECTION
     Route: 048
     Dates: start: 20010208, end: 20030409
  16. ABACAVIR SULFATE [Concomitant]
     Route: 048
     Dates: start: 20020514, end: 20030409
  17. DIDANOSINE [Concomitant]
     Indication: HIV INFECTION
     Route: 048
     Dates: start: 20020716, end: 20030404
  18. VIREAD [Concomitant]
     Indication: HIV INFECTION
     Route: 048
     Dates: start: 20030409, end: 20030409
  19. VIREAD [Concomitant]
     Route: 048
     Dates: start: 20030425, end: 20040521
  20. VIREAD [Concomitant]
     Route: 048
     Dates: start: 20041004
  21. CONCENTRATED GLYCERIN FRUCTOSE [Concomitant]
     Indication: SUBARACHNOID HAEMORRHAGE
     Route: 042
     Dates: start: 20001123, end: 20001227
  22. DIGESTIVE ENZYME PREPARATIONS [Concomitant]
     Indication: PANCREATITIS CHRONIC
     Route: 048
     Dates: start: 20010226, end: 20010313
  23. DIGESTIVE ENZYME PREPARATIONS [Concomitant]
     Route: 048
     Dates: start: 20010314, end: 20040808
  24. DIGESTIVE ENZYME PREPARATIONS [Concomitant]
     Route: 048
     Dates: start: 20040906
  25. BERIZYM [Concomitant]
     Indication: DRUG USE FOR UNKNOWN INDICATION
  26. ACETYLSALICYLIC ACID [Concomitant]
     Indication: RETINAL VEIN OCCLUSION
     Dates: start: 20030808, end: 20040808
  27. ACETYLSALICYLIC ACID [Concomitant]
     Dates: start: 20040906
  28. ASPERGILLUS ORYZAE ENZYME EXTRACT [Concomitant]
     Indication: DRUG USE FOR UNKNOWN INDICATION
     Dates: start: 20010314, end: 20040808
  29. LACTOBACILLUS BIFIDUS, LYOPHILIZED [Concomitant]
     Indication: DRUG USE FOR UNKNOWN INDICATION
     Dates: start: 20010228, end: 20020310

REACTIONS (16)
  - ANHEDONIA [None]
  - ARRHYTHMIA [None]
  - BRADYCARDIA [None]
  - CHEST DISCOMFORT [None]
  - DIARRHOEA [None]
  - DIZZINESS [None]
  - EXTRASYSTOLES [None]
  - HEADACHE [None]
  - MALAISE [None]
  - NAUSEA [None]
  - PALPITATIONS [None]
  - RETINAL VEIN OCCLUSION [None]
  - SICK SINUS SYNDROME [None]
  - SUPRAVENTRICULAR EXTRASYSTOLES [None]
  - VENTRICULAR EXTRASYSTOLES [None]
  - VOMITING [None]
